FAERS Safety Report 4425162-1 (Version None)
Quarter: 2004Q3

REPORT INFORMATION
  Report Type: 
  Country: None (occurrence: None)
  Receive Date: 20040809
  Receipt Date: 20040729
  Transmission Date: 20050211
  Serious: Yes (Other)
  Sender: FDA-Public Use
  Company Number: US-2004-029558

PATIENT
  Sex: Female

DRUGS (1)
  1. BETASERON [Suspect]
     Indication: MULTIPLE SCLEROSIS
     Dosage: RECEIVED 6 WEEKS OF BETASERON, SUBCUTANEOUS
     Route: 058
     Dates: start: 20040601, end: 20040701

REACTIONS (2)
  - IMPAIRED HEALING [None]
  - OSTEOMYELITIS [None]
